FAERS Safety Report 22355268 (Version 1)
Quarter: 2023Q2

REPORT INFORMATION
  Report Type: Other
  Country: DE (occurrence: DE)
  Receive Date: 20230523
  Receipt Date: 20230523
  Transmission Date: 20230721
  Serious: Yes (Death)
  Sender: FDA-Public Use
  Company Number: DE-CELLTRION HEALTHCARE HUNGARY KFT-2023DE009907

PATIENT
  Age: 60 Year
  Sex: Female

DRUGS (17)
  1. LEUCOVORIN CALCIUM [Suspect]
     Active Substance: LEUCOVORIN CALCIUM
     Indication: Neoplasm
     Dosage: EVERY 2 WEEKS
     Route: 065
     Dates: start: 20230201
  2. IRINOTECAN [Suspect]
     Active Substance: IRINOTECAN
     Indication: Neoplasm
     Dosage: EVERY 2 WEEKS
     Route: 065
     Dates: start: 20230201
  3. FLUOROURACIL [Suspect]
     Active Substance: FLUOROURACIL
     Indication: Neoplasm
     Dosage: EVERY 2 WEEKS
     Route: 065
  4. BEVACIZUMAB [Suspect]
     Active Substance: BEVACIZUMAB
     Indication: Neoplasm
     Dosage: 350 MG, EVERY 2 WEEKS
     Route: 065
     Dates: start: 20221102, end: 20230101
  5. PANTOPRAZOLE SODIUM [Concomitant]
     Active Substance: PANTOPRAZOLE SODIUM
  6. CANDESARTAN [Concomitant]
     Active Substance: CANDESARTAN
  7. LOPERAMIDE [Concomitant]
     Active Substance: LOPERAMIDE
  8. ELIQUIS [Concomitant]
     Active Substance: APIXABAN
  9. FUROSEMIDE [Concomitant]
     Active Substance: FUROSEMIDE
  10. METAMIZOLE [Concomitant]
     Active Substance: METAMIZOLE
  11. CHOLECALCIFEROL [Concomitant]
     Active Substance: CHOLECALCIFEROL
  12. CITALOPRAM [Concomitant]
     Active Substance: CITALOPRAM HYDROBROMIDE
  13. METOCLOPRAMIDE [Concomitant]
     Active Substance: METOCLOPRAMIDE
  14. ONDANSETRON [Concomitant]
     Active Substance: ONDANSETRON
  15. ATORVASTATIN [Concomitant]
     Active Substance: ATORVASTATIN
  16. FERROUS SULFATE [Concomitant]
     Active Substance: FERROUS SULFATE
  17. LERCANIDIPINE [Concomitant]
     Active Substance: LERCANIDIPINE

REACTIONS (2)
  - Neoplasm malignant [Fatal]
  - Sepsis [Fatal]

NARRATIVE: CASE EVENT DATE: 20230210
